FAERS Safety Report 7990389-9 (Version None)
Quarter: 2011Q4

REPORT INFORMATION
  Report Type: 
  Country: None (occurrence: None)
  Receive Date: 20111219
  Receipt Date: 20110315
  Transmission Date: 20120403
  Serious: No
  Sender: FDA-Public Use
  Company Number: US-ASTRAZENECA-2011SE10163

PATIENT
  Age: 56 Year
  Sex: Male

DRUGS (2)
  1. PLAVIX [Concomitant]
  2. CRESTOR [Suspect]
     Route: 048
     Dates: start: 20110207, end: 20110218

REACTIONS (5)
  - MYALGIA [None]
  - DRUG INEFFECTIVE [None]
  - FATIGUE [None]
  - LABORATORY TEST ABNORMAL [None]
  - ARTHRALGIA [None]
